FAERS Safety Report 16734415 (Version 1)
Quarter: 2019Q3

REPORT INFORMATION
  Report Type: Spontaneous
  Country: US (occurrence: US)
  Receive Date: 20190823
  Receipt Date: 20190823
  Transmission Date: 20191005
  Serious: Yes (Other)
  Sender: FDA-Public Use
  Company Number: US-BAYER-2019-154332

PATIENT

DRUGS (2)
  1. ELIQUIS [Interacting]
     Active Substance: APIXABAN
     Dosage: 5 MG, BID
     Dates: end: 2019
  2. BAYER LOW DOSE [Suspect]
     Active Substance: ASPIRIN
     Dosage: 81 MG, QD

REACTIONS (6)
  - Nausea [Unknown]
  - Haematemesis [Unknown]
  - Abdominal pain upper [Unknown]
  - Vomiting [Unknown]
  - Duodenal ulcer [Recovering/Resolving]
  - Labelled drug-drug interaction medication error [None]
